FAERS Safety Report 10691673 (Version 1)
Quarter: 2015Q1

REPORT INFORMATION
  Report Type: Report from Study
  Country: CN (occurrence: CN)
  Receive Date: 20150105
  Receipt Date: 20150105
  Transmission Date: 20150720
  Serious: Yes (Hospitalization)
  Sender: FDA-Public Use
  Company Number: CN-ASTELLAS-2014US021787

PATIENT
  Age: 40 Year
  Sex: Male

DRUGS (2)
  1. PACLITAXEL. [Suspect]
     Active Substance: PACLITAXEL
     Indication: OESOPHAGEAL SQUAMOUS CELL CARCINOMA
     Dosage: 4 TIMES WEEKLY
     Route: 065
  2. ERLOTINIB [Suspect]
     Active Substance: ERLOTINIB
     Indication: OESOPHAGEAL SQUAMOUS CELL CARCINOMA
     Route: 048

REACTIONS (4)
  - Pneumocystis jirovecii pneumonia [None]
  - Pneumonia [None]
  - Pulmonary alveolar haemorrhage [Recovered/Resolved]
  - Radiation pneumonitis [None]

NARRATIVE: CASE EVENT DATE: 20130429
